FAERS Safety Report 8522081 (Version 2)
Quarter: 2014Q2

REPORT INFORMATION
  Report Type: Spontaneous
  Country: FR (occurrence: FR)
  Receive Date: 20120419
  Receipt Date: 20140613
  Transmission Date: 20141212
  Serious: Yes (Death, Congenital Anomaly)
  Sender: FDA-Public Use
  Company Number: FR-TEVA-333733ISR

PATIENT
  Age: 0 Day
  Sex: 0

DRUGS (1)
  1. COPAXONE [Suspect]
     Route: 065
     Dates: start: 20110209, end: 20110815

REACTIONS (1)
  - Infection [Fatal]
